FAERS Safety Report 23570425 (Version 1)
Quarter: 2024Q1

REPORT INFORMATION
  Report Type: Spontaneous
  Country: US (occurrence: None)
  Receive Date: 20240226
  Receipt Date: 20240226
  Transmission Date: 20240410
  Serious: Yes (Hospitalization)
  Sender: FDA-Public Use
  Company Number: None

PATIENT
  Sex: Male

DRUGS (1)
  1. NYVEPRIA [Suspect]
     Active Substance: PEGFILGRASTIM-APGF
     Indication: Malignant connective tissue neoplasm
     Dosage: 24 HOURS AFTER LAST DOSE OF CHEMOTHERAPY EVERY 21DAY CYCLE
     Route: 058
     Dates: start: 202402

REACTIONS (1)
  - Hospitalisation [None]
